FAERS Safety Report 16225262 (Version 7)
Quarter: 2020Q2

REPORT INFORMATION
  Report Type: Spontaneous
  Country: CA (occurrence: CA)
  Receive Date: 20190422
  Receipt Date: 20200618
  Transmission Date: 20200713
  Serious: Yes (Other)
  Sender: FDA-Public Use
  Company Number: CA-PFIZER INC-2018315336

PATIENT
  Age: 53 Year
  Sex: Female

DRUGS (5)
  1. XELJANZ [Suspect]
     Active Substance: TOFACITINIB CITRATE
     Indication: RHEUMATOID ARTHRITIS
     Dosage: 5 MG, 2X/DAY
     Route: 048
     Dates: start: 20180721, end: 20180906
  2. XELJANZ [Suspect]
     Active Substance: TOFACITINIB CITRATE
     Dosage: 5 MG, 2X/DAY
     Route: 048
     Dates: start: 2018, end: 20190607
  3. XELJANZ [Suspect]
     Active Substance: TOFACITINIB CITRATE
     Dosage: 5 MG, 2X/DAY
     Route: 048
     Dates: start: 2019, end: 2020
  4. NAPROXEN. [Concomitant]
     Active Substance: NAPROXEN
     Indication: CONDITION AGGRAVATED
     Dosage: UNK, AS NEEDED
  5. METHOTREXATE. [Concomitant]
     Active Substance: METHOTREXATE
     Indication: CONDITION AGGRAVATED
     Dosage: UNK, WEEKLY (25/0.5 MG/ML)

REACTIONS (14)
  - Abdominal pain [Recovered/Resolved]
  - Insomnia [Unknown]
  - Herpes zoster [Unknown]
  - Paraesthesia [Unknown]
  - Blood urine present [Recovered/Resolved]
  - Cough [Not Recovered/Not Resolved]
  - Infection [Unknown]
  - Drug ineffective [Not Recovered/Not Resolved]
  - Back pain [Recovered/Resolved]
  - Transaminases increased [Not Recovered/Not Resolved]
  - Gastric neoplasm [Unknown]
  - Fatigue [Unknown]
  - Hepatic enzyme abnormal [Unknown]
  - Oropharyngeal pain [Unknown]

NARRATIVE: CASE EVENT DATE: 2018
